FAERS Safety Report 4555634-0 (Version None)
Quarter: 2005Q1

REPORT INFORMATION
  Report Type: 
  Country: None (occurrence: None)
  Receive Date: 20050105
  Receipt Date: 20041020
  Transmission Date: 20050727
  Serious: No
  Sender: FDA-Public Use
  Company Number: SU-2004-002783

PATIENT
  Age: 64 Year
  Sex: Male
  Weight: 122.4712 kg

DRUGS (2)
  1. BENICAR HCT [Suspect]
     Indication: HYPERTENSION
     Dosage: 40.25 MG QD PO
     Route: 048
     Dates: start: 20040601, end: 20040618
  2. NORVASC [Suspect]

REACTIONS (1)
  - ANGIONEUROTIC OEDEMA [None]
